FAERS Safety Report 8219721-8 (Version None)
Quarter: 2012Q1

REPORT INFORMATION
  Report Type: 
  Country: None (occurrence: None)
  Receive Date: 20120319
  Receipt Date: 20120309
  Transmission Date: 20120608
  Serious: Yes (Hospitalization)
  Sender: FDA-Public Use
  Company Number: US-ASTRAZENECA-2011SE69433

PATIENT
  Age: 63 Year
  Sex: Female
  Weight: 92.5 kg

DRUGS (10)
  1. PROZAC [Concomitant]
     Indication: BIPOLAR DISORDER
     Dates: start: 20110103
  2. AMLODIPINE [Concomitant]
     Dates: start: 20110201
  3. LOMOTIL [Concomitant]
     Indication: DIARRHOEA
     Dates: start: 20110204
  4. LEVOTHYROXINE SODIUM [Concomitant]
     Indication: HYPOTHYROIDISM
     Dates: start: 20110201
  5. NEXIUM [Suspect]
     Indication: GASTROOESOPHAGEAL REFLUX DISEASE
     Route: 048
     Dates: start: 20110103, end: 20110518
  6. SEROQUEL [Suspect]
     Indication: BIPOLAR DISORDER
     Route: 048
     Dates: start: 20110103
  7. GEODON [Suspect]
     Indication: BIPOLAR DISORDER
     Route: 048
     Dates: end: 20111018
  8. LAMICTAL [Concomitant]
     Indication: BIPOLAR DISORDER
     Dates: start: 20110103
  9. TOPROL-XL [Suspect]
     Indication: HYPERTENSION
     Route: 048
     Dates: start: 20110415, end: 20110915
  10. DEPAKOTE [Concomitant]
     Indication: BIPOLAR DISORDER
     Dates: start: 20110103

REACTIONS (4)
  - SYNCOPE [None]
  - CONDUCTION DISORDER [None]
  - HYPERTENSION [None]
  - THERAPY CESSATION [None]
